FAERS Safety Report 8154863 (Version 13)
Quarter: 2014Q3

REPORT INFORMATION
  Report Type: Spontaneous
  Country: US (occurrence: US)
  Receive Date: 20110923
  Receipt Date: 20140904
  Transmission Date: 20150326
  Serious: Yes (Disabling, Other)
  Sender: FDA-Public Use
  Company Number: US-009507513-1109USA02457

PATIENT
  Sex: Male
  Weight: 113.4 kg

DRUGS (3)
  1. PROSCAR [Suspect]
     Active Substance: FINASTERIDE
     Indication: ALOPECIA
     Dosage: UNK MG, UNK
     Route: 048
     Dates: start: 20060619
  2. PROPECIA [Suspect]
     Active Substance: FINASTERIDE
     Indication: ALOPECIA
     Dosage: 1 MG, QD
     Route: 048
     Dates: start: 200210, end: 200606
  3. FINASTERIDE. [Suspect]
     Active Substance: FINASTERIDE
     Indication: ALOPECIA
     Dosage: 5 MG, QD
     Route: 048
     Dates: start: 20060923, end: 200911

REACTIONS (33)
  - Erectile dysfunction [Not Recovered/Not Resolved]
  - Loss of libido [Not Recovered/Not Resolved]
  - Intentional product misuse [Unknown]
  - Antisocial behaviour [Unknown]
  - Muscle strain [Unknown]
  - Palpitations [Unknown]
  - Eczema [Unknown]
  - Wrong technique in drug usage process [Unknown]
  - Mood swings [Unknown]
  - Joint injury [Unknown]
  - Wound [Unknown]
  - Scrotal pain [Unknown]
  - Epistaxis [Unknown]
  - Testicular pain [Unknown]
  - Lumbar vertebral fracture [Unknown]
  - Genital hypoaesthesia [Unknown]
  - Suicidal ideation [Unknown]
  - Ventricular extrasystoles [Unknown]
  - Groin pain [Unknown]
  - Pelvic pain [Not Recovered/Not Resolved]
  - Penile pain [Unknown]
  - Epididymal cyst [Unknown]
  - Nocturia [Unknown]
  - Cognitive disorder [Not Recovered/Not Resolved]
  - Diverticulum [Unknown]
  - Large intestine polyp [Unknown]
  - Prostatitis [Not Recovered/Not Resolved]
  - Depression [Not Recovered/Not Resolved]
  - Chest wall mass [Unknown]
  - Anxiety [Unknown]
  - Anger [Unknown]
  - Joint dislocation [Unknown]
  - Joint injury [Unknown]

NARRATIVE: CASE EVENT DATE: 2003
